FAERS Safety Report 19271360 (Version 1)
Quarter: 2021Q2

REPORT INFORMATION
  Report Type: Spontaneous
  Country: US (occurrence: US)
  Receive Date: 20210518
  Receipt Date: 20210518
  Transmission Date: 20210717
  Serious: Yes (Other)
  Sender: FDA-Public Use
  Company Number: US-BAUSCH-BL-2021-016086

PATIENT
  Age: 71 Year
  Sex: Male
  Weight: 98 kg

DRUGS (30)
  1. REMDESIVIR. [Interacting]
     Active Substance: REMDESIVIR
     Dosage: ON DAY 5, 6, 7, 8, 9 (MAINTENANCE DOSE)
     Route: 042
  2. ASPIRIN EC [Concomitant]
     Active Substance: ASPIRIN
     Indication: PRODUCT USED FOR UNKNOWN INDICATION
     Route: 048
  3. ATORVASTATIN [Concomitant]
     Active Substance: ATORVASTATIN
     Indication: PRODUCT USED FOR UNKNOWN INDICATION
     Dosage: AT BEDTIME
     Route: 048
  4. BENZONATATE. [Concomitant]
     Active Substance: BENZONATATE
     Indication: COUGH
     Dosage: AS NEEDED
     Route: 048
  5. CHOLECALCIFEROL [Concomitant]
     Active Substance: CHOLECALCIFEROL
     Indication: PRODUCT USED FOR UNKNOWN INDICATION
     Route: 048
  6. WARFARIN [Interacting]
     Active Substance: WARFARIN
     Dosage: ON DAY 12
     Route: 065
  7. REMDESIVIR. [Interacting]
     Active Substance: REMDESIVIR
     Indication: COVID-19
     Dosage: ONE?TIME DOSE ON DAY 4
     Route: 042
  8. ACETAMINOPHEN. [Concomitant]
     Active Substance: ACETAMINOPHEN
     Indication: PYREXIA
  9. DOCUSATE [Concomitant]
     Active Substance: DOCUSATE
     Indication: PRODUCT USED FOR UNKNOWN INDICATION
     Route: 048
  10. GLUCAGON. [Concomitant]
     Active Substance: GLUCAGON
     Indication: HYPOGLYCAEMIA
     Dosage: AS DIRECTED IN HYPOGLYCEMIC PROTOCOL
     Route: 030
  11. METOPROLOL TARTRATE. [Concomitant]
     Active Substance: METOPROLOL TARTRATE
     Indication: PRODUCT USED FOR UNKNOWN INDICATION
     Route: 048
  12. SENNA [Concomitant]
     Active Substance: SENNA LEAF\SENNOSIDES\SENNOSIDES A AND B
     Indication: PRODUCT USED FOR UNKNOWN INDICATION
     Route: 048
  13. TAMSULOSIN [Concomitant]
     Active Substance: TAMSULOSIN
     Indication: PRODUCT USED FOR UNKNOWN INDICATION
     Dosage: AT BEDTIME
     Route: 048
  14. DEXAMETHASONE. [Suspect]
     Active Substance: DEXAMETHASONE
     Indication: COVID-19
     Dosage: FROM DAY 3?12
     Route: 048
  15. ACETAMINOPHEN. [Concomitant]
     Active Substance: ACETAMINOPHEN
     Indication: PAIN
     Route: 048
  16. ALBUTEROL/IPRATROPIUM [Concomitant]
     Active Substance: ALBUTEROL\IPRATROPIUM
     Indication: DYSPNOEA
     Dosage: ONE PUFF (100 MCG ALBUTEROL/20 MCG IPRATROPIUM PER PUFF) EVERY 4 HOURS AS NEEDED
  17. DEXTROSE. [Concomitant]
     Active Substance: DEXTROSE
     Indication: HYPOGLYCAEMIA
     Dosage: AS DIRECTED IN HYPOGLYCEMIC PROTOCOL
     Route: 042
  18. GLUCOSE LIQUID [Concomitant]
     Indication: HYPOGLYCAEMIA
     Dosage: AS DIRECTED IN HYPOGLYCEMIC PROTOCOL
     Route: 048
  19. HEPARIN FLUSH [Concomitant]
     Active Substance: HEPARIN SODIUM
     Indication: PRODUCT USED FOR UNKNOWN INDICATION
     Dosage: TO FLUSH MIDLINE
  20. VITAMIN K [Concomitant]
     Active Substance: PHYTONADIONE
     Indication: PRODUCT USED FOR UNKNOWN INDICATION
  21. OXYGEN. [Concomitant]
     Active Substance: OXYGEN
     Indication: PRODUCT USED FOR UNKNOWN INDICATION
  22. WARFARIN [Interacting]
     Active Substance: WARFARIN
     Dosage: ON TUESDAYS AND FRIDAYS
     Route: 065
  23. DORZOLAMIDE [Concomitant]
     Active Substance: DORZOLAMIDE
     Indication: PRODUCT USED FOR UNKNOWN INDICATION
     Dosage: ONE DROP IN RIGHT EYE EVERY 8 HOURS
     Route: 047
  24. WARFARIN [Interacting]
     Active Substance: WARFARIN
     Indication: PULMONARY EMBOLISM
     Dosage: DAILY EXCEPT TUEDSAYS AND FRIDAYS
     Route: 065
  25. INSULIN ASPART [Concomitant]
     Active Substance: INSULIN ASPART
     Indication: PRODUCT USED FOR UNKNOWN INDICATION
     Dosage: WITH MEALS AND AT BEDTIME
     Route: 058
  26. PANTOPRAZOLE EC [Concomitant]
     Indication: PRODUCT USED FOR UNKNOWN INDICATION
     Dosage: WITH BREAKFAST
     Route: 048
  27. DEXAMETHASONE. [Interacting]
     Active Substance: DEXAMETHASONE
     Indication: PRODUCT USE IN UNAPPROVED INDICATION
  28. WARFARIN [Interacting]
     Active Substance: WARFARIN
     Dosage: RESTARTED ON DAY 9, 10
     Route: 065
  29. BUDESONIDE/FORMOTEROL [Concomitant]
     Active Substance: BUDESONIDE\FORMOTEROL
     Indication: PRODUCT USED FOR UNKNOWN INDICATION
     Dosage: TWO PUFFS (160 MCG BUDESONIDE/4.5 MCG FORMOTEROL PER PUFF) INHALATION EVERY 12 HOURS
  30. NORMAL SALINE [Concomitant]
     Active Substance: SODIUM CHLORIDE
     Indication: PRODUCT USED FOR UNKNOWN INDICATION
     Dosage: TO FLUSH MIDLINE

REACTIONS (2)
  - Product use in unapproved indication [Unknown]
  - Drug interaction [Unknown]
